FAERS Safety Report 24020641 (Version 2)
Quarter: 2024Q3

REPORT INFORMATION
  Report Type: Spontaneous
  Country: RU (occurrence: RU)
  Receive Date: 20240627
  Receipt Date: 20240702
  Transmission Date: 20241017
  Serious: Yes (Life-Threatening, Other)
  Sender: DR REDDYS
  Company Number: RU-RZN-LIT/RUS/24/0008995

PATIENT
  Sex: Female

DRUGS (2)
  1. IMATINIB [Suspect]
     Active Substance: IMATINIB
     Indication: Chronic myeloid leukaemia
  2. IMATINIB [Suspect]
     Active Substance: IMATINIB

REACTIONS (5)
  - Neutropenia [Unknown]
  - Drug ineffective [Unknown]
  - Anaemia [Unknown]
  - Face oedema [Unknown]
  - Nausea [Unknown]
